FAERS Safety Report 6298468-1 (Version None)
Quarter: 2009Q3

REPORT INFORMATION
  Report Type: 
  Country: None (occurrence: None)
  Receive Date: 20090805
  Receipt Date: 20090409
  Transmission Date: 20100115
  Serious: Yes (Disabling)
  Sender: FDA-Public Use
  Company Number: PHHO2009FR04763

PATIENT
  Sex: Male
  Weight: 62 kg

DRUGS (3)
  1. RAD 666 RAD+TAB [Suspect]
     Indication: RENAL CANCER METASTATIC
     Dosage: 10MG
     Dates: start: 20090114, end: 20090122
  2. SOLU-MEDROL [Concomitant]
  3. DURAGESIC-100 [Concomitant]

REACTIONS (3)
  - CHEILITIS [None]
  - HYPOPHAGIA [None]
  - MUCOSAL INFLAMMATION [None]
